FAERS Safety Report 9132227 (Version 1)
Quarter: 2013Q1

REPORT INFORMATION
  Report Type: Spontaneous
  Country: DE (occurrence: TH)
  Receive Date: 20130301
  Receipt Date: 20130301
  Transmission Date: 20140127
  Serious: Yes (Other)
  Sender: FDA-Public Use
  Company Number: TH-FRI-1000043016

PATIENT
  Sex: Male

DRUGS (3)
  1. ROFLUMILAST [Suspect]
     Indication: CHRONIC OBSTRUCTIVE PULMONARY DISEASE
     Dosage: 500 MCG
     Route: 048
  2. TIOTROPIUM BROMIDE [Concomitant]
  3. FLUTICASONE W/SALMETEROL [Concomitant]

REACTIONS (1)
  - Diastolic hypotension [Not Recovered/Not Resolved]
